FAERS Safety Report 9401553 (Version 2)
Quarter: 2013Q3

REPORT INFORMATION
  Report Type: Spontaneous
  Country: US (occurrence: US)
  Receive Date: 20130716
  Receipt Date: 20130726
  Transmission Date: 20140515
  Serious: Yes (Life-Threatening, Other)
  Sender: FDA-Public Use
  Company Number: US-009507513-1307USA006106

PATIENT
  Sex: Female

DRUGS (1)
  1. JANUMET [Suspect]
     Route: 048

REACTIONS (1)
  - Pancreatic carcinoma [Unknown]
